FAERS Safety Report 19690428 (Version 1)
Quarter: 2021Q3

REPORT INFORMATION
  Report Type: Spontaneous
  Country: US (occurrence: US)
  Receive Date: 20210812
  Receipt Date: 20210812
  Transmission Date: 20211014
  Serious: Yes (Other)
  Sender: FDA-Public Use
  Company Number: None

PATIENT
  Age: 74 Year
  Sex: Female

DRUGS (4)
  1. CALQUENCE [Suspect]
     Active Substance: ACALABRUTINIB
     Indication: CHRONIC LYMPHOCYTIC LEUKAEMIA
     Route: 048
     Dates: start: 20210805, end: 20210810
  2. LOPERAMIDE 2 MG [Concomitant]
     Active Substance: LOPERAMIDE
  3. ACETAMINOPHEN 650 MG [Concomitant]
     Active Substance: ACETAMINOPHEN
  4. METOPROLOL SUCCINATE 50 MG [Concomitant]
     Active Substance: METOPROLOL SUCCINATE

REACTIONS (1)
  - Ecchymosis [None]

NARRATIVE: CASE EVENT DATE: 20210810
